FAERS Safety Report 15750020 (Version 2)
Quarter: 2019Q1

REPORT INFORMATION
  Report Type: Other
  Country: PL (occurrence: PL)
  Receive Date: 20181221
  Receipt Date: 20190107
  Transmission Date: 20190417
  Serious: Yes (Hospitalization, Other)
  Sender: FDA-Public Use
  Company Number: PL-APOTEX-2018AP027683

PATIENT
  Age: 70 Year
  Sex: Male

DRUGS (14)
  1. DULOXETINE. [Interacting]
     Active Substance: DULOXETINE
     Indication: PRODUCT USED FOR UNKNOWN INDICATION
     Dosage: DOSE INCREASED
     Route: 065
  2. METOPROLOL. [Interacting]
     Active Substance: METOPROLOL
     Indication: PRODUCT USED FOR UNKNOWN INDICATION
     Dosage: 25 MG, QD (1 X 25 MG, DOSE REDUCED)
     Route: 065
  3. METOPROLOL. [Interacting]
     Active Substance: METOPROLOL
     Dosage: 50 MG, BID (2 X 50 MG)
     Route: 065
  4. METFORMIN [Concomitant]
     Active Substance: METFORMIN HYDROCHLORIDE
     Indication: PRODUCT USED FOR UNKNOWN INDICATION
     Dosage: 1000 MG, BID (2 X 1000 MG)
     Route: 065
  5. DULOXETINE. [Interacting]
     Active Substance: DULOXETINE
     Dosage: 90 UNK, UNK
     Route: 065
  6. TAMSULOSIN [Concomitant]
     Active Substance: TAMSULOSIN
     Indication: PRODUCT USED FOR UNKNOWN INDICATION
     Dosage: 0.4 MG, QD (1 X 0.4 MG)
     Route: 065
  7. DABIGATRAN [Concomitant]
     Active Substance: DABIGATRAN
     Indication: PRODUCT USED FOR UNKNOWN INDICATION
     Dosage: 150 MG, BID (2 X 150 MG)
     Route: 065
  8. QUETIAPINE. [Suspect]
     Active Substance: QUETIAPINE
     Indication: DEPRESSION
     Dosage: 50 MG, QD (TAKEN AT BED TIME)
     Route: 048
  9. QUETIAPINE. [Interacting]
     Active Substance: QUETIAPINE
     Indication: INITIAL INSOMNIA
  10. DULOXETINE. [Interacting]
     Active Substance: DULOXETINE
     Dosage: 60 MG, QD (TAKEN IN THE MORNING)
     Route: 065
  11. CIPROFLOXACIN. [Interacting]
     Active Substance: CIPROFLOXACIN
     Indication: PROSTATITIS
     Dosage: 500 MG, QD
     Route: 065
  12. CIPROFLOXACIN. [Interacting]
     Active Substance: CIPROFLOXACIN
     Dosage: 500 MG, BID
     Route: 048
  13. DIGOXIN. [Concomitant]
     Active Substance: DIGOXIN
     Indication: PRODUCT USED FOR UNKNOWN INDICATION
     Dosage: 0.1 MG, QD (1 X 0.1 MG)
     Route: 065
  14. ALPHA LIPOIC ACID [Concomitant]
     Active Substance: .ALPHA.-LIPOIC ACID
     Indication: PRODUCT USED FOR UNKNOWN INDICATION
     Dosage: 600 MG, QD (1 X 600 MG)
     Route: 065

REACTIONS (17)
  - Diplopia [Recovered/Resolved]
  - Urinary retention [Recovered/Resolved]
  - Dizziness [Recovered/Resolved]
  - Anhedonia [Recovered/Resolved]
  - Anxiety [Recovered/Resolved]
  - Pain [Recovered/Resolved]
  - Depressed mood [Recovered/Resolved]
  - Affective disorder [Recovered/Resolved]
  - Initial insomnia [Recovered/Resolved]
  - Nausea [Recovered/Resolved]
  - Headache [Recovered/Resolved]
  - Syncope [Recovered/Resolved]
  - Tremor [Recovered/Resolved]
  - Prostatitis [Recovered/Resolved]
  - Drug interaction [Recovered/Resolved]
  - Yawning [Recovered/Resolved]
  - Bradycardia [Recovered/Resolved]
